FAERS Safety Report 7623087-1 (Version None)
Quarter: 2011Q3

REPORT INFORMATION
  Report Type: 
  Country: None (occurrence: None)
  Receive Date: 20110720
  Receipt Date: 20110715
  Transmission Date: 20111222
  Serious: Yes (Other)
  Sender: FDA-Public Use
  Company Number: CA-PFIZER INC-2011160718

PATIENT
  Age: 77 Year
  Sex: Male

DRUGS (5)
  1. ALTACE [Concomitant]
     Dosage: 10 MG
  2. PHENOBARBITAL [Concomitant]
     Indication: CONVULSION
     Dosage: 30 MG, 2X/DAY
  3. DILANTIN [Suspect]
     Indication: GRAND MAL CONVULSION
     Dosage: 400 MG PER DAY
     Route: 048
  4. CRESTOR [Concomitant]
     Dosage: 20 MG
  5. AGGRENOX [Concomitant]
     Dosage: 1 (UNSPECIFIED UNITS), 2X/DAY

REACTIONS (3)
  - CONVULSION [None]
  - ANTICONVULSANT DRUG LEVEL BELOW THERAPEUTIC [None]
  - ROAD TRAFFIC ACCIDENT [None]
